FAERS Safety Report 14157789 (Version 2)
Quarter: 2018Q1

REPORT INFORMATION
  Report Type: Report from Study
  Country: US (occurrence: US)
  Receive Date: 20171103
  Receipt Date: 20180213
  Transmission Date: 20180508
  Serious: No
  Sender: FDA-Public Use
  Company Number: US-PUMA BIOTECHNOLOGY, LTD.-2017US013448

PATIENT

DRUGS (3)
  1. NERLYNX [Suspect]
     Active Substance: NERATINIB
     Dosage: 200 MG, DAILY
     Route: 048
     Dates: start: 20171116
  2. NERLYNX [Suspect]
     Active Substance: NERATINIB
     Dosage: 160 MG, DAILY
     Route: 048
     Dates: start: 20171109, end: 20171115
  3. NERLYNX [Suspect]
     Active Substance: NERATINIB
     Indication: BREAST CANCER
     Dosage: 240 MG, DAILY
     Route: 048
     Dates: start: 20170927, end: 20171030

REACTIONS (6)
  - Fatigue [Unknown]
  - Influenza like illness [Unknown]
  - Abdominal discomfort [Unknown]
  - Diarrhoea [Recovered/Resolved]
  - Nausea [Unknown]
  - Gastritis [Unknown]
